FAERS Safety Report 8941970 (Version 1)
Quarter: 2012Q4

REPORT INFORMATION
  Report Type: 
  Country: SE (occurrence: SE)
  Receive Date: 20121203
  Receipt Date: 20121203
  Transmission Date: 20130627
  Serious: Yes (Hospitalization)
  Sender: FDA-Public Use
  Company Number: SE-JNJFOC-20121113743

PATIENT
  Age: 59 Year
  Sex: Female

DRUGS (4)
  1. REMICADE [Suspect]
     Indication: PRODUCT USED FOR UNKNOWN INDICATION
     Route: 042
     Dates: start: 20120201, end: 20120516
  2. PREDNISOLONE [Concomitant]
     Route: 065
     Dates: start: 20111216
  3. METHOTREXATE [Concomitant]
     Route: 065
     Dates: start: 20060301
  4. ALL OTHER THERAPEUTIC PRODUCTS [Concomitant]
     Route: 065
     Dates: start: 20030101

REACTIONS (3)
  - Salivary gland enlargement [Recovering/Resolving]
  - Conjunctivitis [Recovering/Resolving]
  - Lacrimal gland enlargement [Recovering/Resolving]
